FAERS Safety Report 11093468 (Version 1)
Quarter: 2015Q2

REPORT INFORMATION
  Report Type: Spontaneous
  Country: US (occurrence: US)
  Receive Date: 20150506
  Receipt Date: 20150506
  Transmission Date: 20150821
  Serious: Yes (Other)
  Sender: FDA-Public Use
  Company Number: US-BAYER-2015-182655

PATIENT
  Age: 54 Year
  Sex: Female

DRUGS (5)
  1. TYLENOL [Concomitant]
     Active Substance: ACETAMINOPHEN
  2. BETASERON [Suspect]
     Active Substance: INTERFERON BETA-1B
     Indication: PRODUCT USED FOR UNKNOWN INDICATION
     Dosage: UNK
     Route: 051
  3. OXYBUTON [OXYBUTYNIN HYDROCHLORIDE] [Concomitant]
  4. AMPYRA [Suspect]
     Active Substance: DALFAMPRIDINE
     Indication: MULTIPLE SCLEROSIS
     Dosage: 10 MG, BID
     Route: 048
     Dates: start: 20140918
  5. IBUPROFEN [IBUPROFEN] [Concomitant]
     Active Substance: IBUPROFEN

REACTIONS (8)
  - Injection site urticaria [Unknown]
  - Muscle tightness [Unknown]
  - Influenza like illness [Unknown]
  - Fatigue [Unknown]
  - Tremor [Unknown]
  - Chills [Unknown]
  - Injection site pain [Unknown]
  - Headache [Unknown]
